FAERS Safety Report 9343095 (Version 1)
Quarter: 2013Q2

REPORT INFORMATION
  Report Type: Spontaneous
  Country: GB (occurrence: GB)
  Receive Date: 20130611
  Receipt Date: 20130611
  Transmission Date: 20140414
  Serious: Yes (Other)
  Sender: FDA-Public Use
  Company Number: PHHY2013GB057402

PATIENT
  Age: 33 Year
  Sex: Female
  Weight: 81.64 kg

DRUGS (5)
  1. METRONIDAZOLE [Suspect]
     Indication: VAGINITIS BACTERIAL
     Route: 048
     Dates: start: 20130520, end: 20130525
  2. ATRIPLA [Concomitant]
  3. SEPTRIN [Concomitant]
  4. VENLAFAXINE [Concomitant]
  5. ADCAL-D3 [Concomitant]

REACTIONS (2)
  - Influenza like illness [Recovered/Resolved]
  - Diarrhoea [Recovering/Resolving]
